FAERS Safety Report 15728026 (Version 2)
Quarter: 2019Q1

REPORT INFORMATION
  Report Type: Report from Study
  Country: AT (occurrence: AT)
  Receive Date: 20181217
  Receipt Date: 20190225
  Transmission Date: 20190417
  Serious: Yes (Other)
  Sender: FDA-Public Use
  Company Number: AT-ROCHE-2231295

PATIENT

DRUGS (2)
  1. RIBAVIRIN. [Suspect]
     Active Substance: RIBAVIRIN
     Indication: CHRONIC HEPATITIS C
     Route: 048
  2. OMBITASVIR/PARITAPREVIR/RITONAVIR [Concomitant]
     Active Substance: OMBITASVIR\PARITAPREVIR\RITONAVIR

REACTIONS (1)
  - Hyperbilirubinaemia [Unknown]
